FAERS Safety Report 14076288 (Version 1)
Quarter: 2017Q4

REPORT INFORMATION
  Report Type: Spontaneous
  Country: FR (occurrence: FR)
  Receive Date: 20171010
  Receipt Date: 20171010
  Transmission Date: 20180321
  Serious: Yes (Hospitalization, Other)
  Sender: FDA-Public Use
  Company Number: FR-BAXTER-2017BAX034455

PATIENT
  Age: 46 Year
  Sex: Female

DRUGS (19)
  1. RITUXIMAB (MAMMIFERE/HAMSTER/CELLULES CHO) [Suspect]
     Active Substance: RITUXIMAB
     Indication: GRANULOMATOSIS WITH POLYANGIITIS
     Dosage: 2 COURSES, 2 INJECTIONS AT TWO WEEK INTERVALS
     Route: 042
     Dates: start: 201212, end: 201212
  2. RITUXIMAB (MAMMIFERE/HAMSTER/CELLULES CHO) [Suspect]
     Active Substance: RITUXIMAB
     Dosage: 4TH COURSE
     Route: 042
     Dates: start: 201412, end: 201412
  3. PULMICORT 400 [Concomitant]
     Indication: PRODUCT USED FOR UNKNOWN INDICATION
     Dosage: 2 PUFFS PER DAY
     Route: 055
  4. CALCIT D3 [Concomitant]
     Indication: PRODUCT USED FOR UNKNOWN INDICATION
     Route: 065
  5. ENDOXAN 1000 MG, POUDRE POUR SOLUTIONINJECTABLE [Suspect]
     Active Substance: CYCLOPHOSPHAMIDE
     Indication: LARYNGEAL STENOSIS
  6. ACTONEL [Concomitant]
     Active Substance: RISEDRONATE SODIUM
     Indication: PRODUCT USED FOR UNKNOWN INDICATION
     Route: 065
  7. RITUXIMAB (MAMMIFERE/HAMSTER/CELLULES CHO) [Suspect]
     Active Substance: RITUXIMAB
     Dosage: 3RD COURSE
     Route: 042
     Dates: start: 201406, end: 201406
  8. NASONEX [Concomitant]
     Active Substance: MOMETASONE FUROATE
     Indication: PRODUCT USED FOR UNKNOWN INDICATION
     Dosage: 2 SPRAYS PER DAY
     Route: 065
  9. CORTANCYL [Suspect]
     Active Substance: PREDNISONE
     Indication: GRANULOMATOSIS WITH POLYANGIITIS
     Route: 048
     Dates: start: 200511
  10. APROVEL [Concomitant]
     Active Substance: IRBESARTAN
     Indication: PRODUCT USED FOR UNKNOWN INDICATION
     Route: 065
  11. SYMBICORT [Concomitant]
     Active Substance: BUDESONIDE\FORMOTEROL FUMARATE DIHYDRATE
     Indication: PRODUCT USED FOR UNKNOWN INDICATION
     Dosage: WHEN PRACTISING A SPORT (2 PUFFS/DAY)
     Route: 055
  12. ENDOXAN 1000 MG, POUDRE POUR SOLUTIONINJECTABLE [Suspect]
     Active Substance: CYCLOPHOSPHAMIDE
     Indication: DISEASE RECURRENCE
     Dosage: POWDER FOR INJECTION, 6 COURSES, 600 MG/M2 AT DAY 1, DAY 14, DAY 28 AND THEN THE DOSE WAS INCREASED
     Route: 042
     Dates: start: 201201, end: 201204
  13. IMUREL [Suspect]
     Active Substance: AZATHIOPRINE SODIUM
     Route: 048
     Dates: start: 20120521, end: 2015
  14. RITUXIMAB (MAMMIFERE/HAMSTER/CELLULES CHO) [Suspect]
     Active Substance: RITUXIMAB
     Dosage: 5TH COURSE
     Route: 042
     Dates: start: 201506, end: 201506
  15. MUPIDERM [Concomitant]
     Active Substance: MUPIROCIN
     Indication: PRODUCT USED FOR UNKNOWN INDICATION
     Dosage: 5 DAYS PER MONTH - NASAL APPLICATION
     Route: 065
  16. MELIANE [Concomitant]
     Active Substance: ETHINYL ESTRADIOL\GESTODENE
     Indication: PRODUCT USED FOR UNKNOWN INDICATION
     Route: 065
  17. ENDOXAN 1000 MG, POUDRE POUR SOLUTIONINJECTABLE [Suspect]
     Active Substance: CYCLOPHOSPHAMIDE
     Indication: GRANULOMATOSIS WITH POLYANGIITIS
     Dosage: POWDER FOR INJECTION, 6 COURSES
     Route: 042
     Dates: start: 200512
  18. RITUXIMAB (MAMMIFERE/HAMSTER/CELLULES CHO) [Suspect]
     Active Substance: RITUXIMAB
     Dosage: 6TH COURSE
     Route: 042
     Dates: start: 201512, end: 201512
  19. IMUREL [Suspect]
     Active Substance: AZATHIOPRINE SODIUM
     Indication: GRANULOMATOSIS WITH POLYANGIITIS
     Route: 048
     Dates: start: 200601, end: 201203

REACTIONS (3)
  - Malignant melanoma [Unknown]
  - Laryngeal stenosis [Unknown]
  - Disease recurrence [Unknown]

NARRATIVE: CASE EVENT DATE: 2007
